FAERS Safety Report 20786823 (Version 3)
Quarter: 2022Q3

REPORT INFORMATION
  Report Type: Report from Study
  Country: IL (occurrence: IL)
  Receive Date: 20220505
  Receipt Date: 20220817
  Transmission Date: 20221026
  Serious: Yes (Hospitalization)
  Sender: FDA-Public Use
  Company Number: IL-PFIZER INC-202101227238

PATIENT
  Age: 42 Year
  Sex: Female

DRUGS (3)
  1. ENBREL [Suspect]
     Active Substance: ETANERCEPT
     Indication: Rheumatoid arthritis
     Dosage: 50 MG, WEEKLY
     Route: 058
  2. ENBREL [Suspect]
     Active Substance: ETANERCEPT
     Dosage: 25 MG, TWICE WEEKLY
     Route: 058
  3. ENBREL [Suspect]
     Active Substance: ETANERCEPT
     Dosage: 25 MG, TWICE WEEKLY
     Route: 058

REACTIONS (10)
  - Coronavirus infection [Recovering/Resolving]
  - Infection [Recovered/Resolved]
  - Eye infection [Recovering/Resolving]
  - Full blood count abnormal [Recovering/Resolving]
  - Eye injury [Recovering/Resolving]
  - Wrong technique in device usage process [Unknown]
  - Product preparation issue [Unknown]
  - Product administration error [Unknown]
  - Incorrect disposal of product [Unknown]
  - Product dose omission issue [Unknown]

NARRATIVE: CASE EVENT DATE: 20210101
